FAERS Safety Report 8179656-6 (Version None)
Quarter: 2012Q1

REPORT INFORMATION
  Report Type: 
  Country: None (occurrence: None)
  Receive Date: 20120229
  Receipt Date: 20120223
  Transmission Date: 20120608
  Serious: Yes (Hospitalization)
  Sender: FDA-Public Use
  Company Number: A0967195A

PATIENT
  Age: 69 Year
  Sex: Male

DRUGS (2)
  1. BISOPROLOL FUMARATE [Concomitant]
  2. CARVEDILOL [Suspect]
     Indication: CARDIAC FAILURE

REACTIONS (7)
  - BENIGN PROSTATIC HYPERPLASIA [None]
  - WHEEZING [None]
  - CARDIAC FAILURE [None]
  - RESPIRATORY TRACT INFECTION [None]
  - URINARY RETENTION [None]
  - CHRONIC OBSTRUCTIVE PULMONARY DISEASE [None]
  - RESPIRATORY DISTRESS [None]
